FAERS Safety Report 4319916-X (Version None)
Quarter: 2004Q1

REPORT INFORMATION
  Report Type: 
  Country: None (occurrence: None)
  Receive Date: 20040316
  Receipt Date: 20040308
  Transmission Date: 20041129
  Serious: Yes (Other)
  Sender: FDA-Public Use
  Company Number: 204849

PATIENT
  Age: 30 Year
  Sex: Male
  Weight: 82 kg

DRUGS (8)
  1. XOLAIR [Suspect]
     Indication: ASTHMA
     Dosage: 375 MG, Q2W, SUBCUTANEOUS
     Route: 058
     Dates: start: 20040202
  2. PULMICORT [Concomitant]
  3. XOPENEX [Concomitant]
  4. ATROVENT [Concomitant]
  5. SINGULAIR [Concomitant]
  6. CORAL CALCIUM (CALCIUM NOS, CHOLECALCIFEROL, MAGNESIUM NOS) [Concomitant]
  7. ALLEGRA [Concomitant]
  8. ADVAIR DISKUS (FLUTICASONE PROPIONATE, SALMETEROL XINAFOATE) [Concomitant]

REACTIONS (3)
  - BLOOD PRESSURE INCREASED [None]
  - CHEST PAIN [None]
  - PALPITATIONS [None]
